FAERS Safety Report 7449889-2 (Version None)
Quarter: 2011Q2

REPORT INFORMATION
  Report Type: 
  Country: None (occurrence: None)
  Receive Date: 20110502
  Receipt Date: 20100514
  Transmission Date: 20111010
  Serious: No
  Sender: FDA-Public Use
  Company Number: US-BAYER-201023309NA

PATIENT
  Sex: Female

DRUGS (2)
  1. YAZ [Suspect]
  2. AMPICILLIN [Concomitant]
     Indication: NASOPHARYNGITIS

REACTIONS (4)
  - AMENORRHOEA [None]
  - FUNGAL INFECTION [None]
  - VAGINAL HAEMORRHAGE [None]
  - NASOPHARYNGITIS [None]
